FAERS Safety Report 17338022 (Version 1)
Quarter: 2020Q1

REPORT INFORMATION
  Report Type: Spontaneous
  Country: US (occurrence: US)
  Receive Date: 20200129
  Receipt Date: 20200129
  Transmission Date: 20200409
  Serious: Yes (Death, Other)
  Sender: FDA-Public Use
  Company Number: US-BRISTOL-MYERS SQUIBB COMPANY-BMS-2020-004365

PATIENT
  Sex: Male

DRUGS (1)
  1. COUMADIN [Suspect]
     Active Substance: WARFARIN SODIUM
     Indication: CEREBROVASCULAR ACCIDENT
     Dosage: UNAVAILABLE
     Route: 065

REACTIONS (5)
  - Fall [Fatal]
  - Coma [Fatal]
  - Head injury [Fatal]
  - Cerebral haemorrhage [Fatal]
  - Gastrointestinal disorder [Unknown]
